FAERS Safety Report 24787692 (Version 1)
Quarter: 2024Q4

REPORT INFORMATION
  Report Type: Spontaneous
  Country: IT (occurrence: IT)
  Receive Date: 20241230
  Receipt Date: 20241230
  Transmission Date: 20250114
  Serious: Yes (Death)
  Sender: STRIDES
  Company Number: IT-STRIDES ARCOLAB LIMITED-2024SP017077

PATIENT
  Age: 5 Decade
  Sex: Male

DRUGS (2)
  1. TRAMADOL [Suspect]
     Active Substance: TRAMADOL
     Indication: Product used for unknown indication
     Dosage: UNK
     Route: 065
  2. MIRTAZAPINE [Suspect]
     Active Substance: MIRTAZAPINE
     Indication: Product used for unknown indication
     Dosage: UNK
     Route: 065

REACTIONS (5)
  - Brain oedema [Fatal]
  - Pulmonary congestion [Fatal]
  - Pulmonary oedema [Fatal]
  - Toxicity to various agents [Fatal]
  - Overdose [Fatal]
